FAERS Safety Report 4350509-4 (Version None)
Quarter: 2004Q2

REPORT INFORMATION
  Report Type: 
  Country: None (occurrence: None)
  Receive Date: 20040430
  Receipt Date: 20040423
  Transmission Date: 20050107
  Serious: Yes (Other)
  Sender: FDA-Public Use
  Company Number: AU-BRISTOL-MYERS SQUIBB COMPANY-12574455

PATIENT
  Age: 3 Year
  Sex: Male

DRUGS (5)
  1. ETOPOSIDE [Suspect]
     Indication: NEUROBLASTOMA
     Dates: start: 19910501, end: 19930201
  2. VINCRISTINE SULFATE [Suspect]
     Indication: NEUROBLASTOMA
     Dosage: DAYS 1 + 14
     Dates: start: 19910501, end: 19930201
  3. CYCLOPHOSPHAMIDE [Suspect]
     Indication: NEUROBLASTOMA
     Dosage: DAYS 1+14;5 MG/KG/CYCLE TO MAX 55 MG/KG/D (CYCLE 6) - DAYS 1, 2 + 3
     Dates: start: 19910501, end: 19930201
  4. MESNA [Concomitant]
  5. CO-TRIMOXAZOLE [Concomitant]
     Indication: PROPHYLAXIS

REACTIONS (1)
  - PNEUMOCYSTIS CARINII PNEUMONIA [None]
